FAERS Safety Report 15255048 (Version 3)
Quarter: 2019Q1

REPORT INFORMATION
  Report Type: Report from Study
  Country: US (occurrence: US)
  Receive Date: 20180808
  Receipt Date: 20190130
  Transmission Date: 20190417
  Serious: Yes (Other)
  Sender: FDA-Public Use
  Company Number: US-TESARO, INC-US-2018TSO03852

PATIENT
  Sex: Female

DRUGS (3)
  1. CLARITIN [Concomitant]
     Active Substance: LORATADINE
     Indication: PRODUCT USED FOR UNKNOWN INDICATION
  2. ZEJULA [Suspect]
     Active Substance: NIRAPARIB
     Indication: OVARIAN CANCER
     Dosage: 300 MG, 3 CAPSULES BY MOUTH DAILY AROUND 5PM
     Route: 048
     Dates: start: 20180504
  3. MAGNESIUM OXIDE. [Concomitant]
     Active Substance: MAGNESIUM OXIDE
     Indication: PRODUCT USED FOR UNKNOWN INDICATION

REACTIONS (7)
  - Neuropathy peripheral [Not Recovered/Not Resolved]
  - Surgery [Not Recovered/Not Resolved]
  - Urinary tract disorder [Unknown]
  - Weight increased [Unknown]
  - Dysuria [Not Recovered/Not Resolved]
  - Fatigue [Unknown]
  - Product dose omission [Unknown]
